FAERS Safety Report 8367481-2 (Version None)
Quarter: 2012Q2

REPORT INFORMATION
  Report Type: 
  Country: None (occurrence: None)
  Receive Date: 20120517
  Receipt Date: 20120302
  Transmission Date: 20120825
  Serious: No
  Sender: FDA-Public Use
  Company Number: US-GLAXOSMITHKLINE-A0969183A

PATIENT
  Sex: Female
  Weight: 85 kg

DRUGS (6)
  1. VOTRIENT [Suspect]
     Indication: PRODUCT USED FOR UNKNOWN INDICATION
     Dosage: 800MG PER DAY
     Route: 048
  2. METHYLDOPA [Concomitant]
  3. MORPHINE SULPHATE SLOW RELEASE [Concomitant]
  4. NEURONTIN [Concomitant]
  5. ZOFRAN [Concomitant]
  6. ENOXAPARIN [Concomitant]

REACTIONS (2)
  - NAUSEA [None]
  - VOMITING [None]
